FAERS Safety Report 8809519 (Version 2)
Quarter: 2015Q2

REPORT INFORMATION
  Report Type: Report from Study
  Country: US (occurrence: US)
  Receive Date: 20120926
  Receipt Date: 20150629
  Transmission Date: 20150821
  Serious: Yes (Other)
  Sender: FDA-Public Use
  Company Number: US-ROCHE-1101406

PATIENT
  Sex: Male

DRUGS (12)
  1. ISMO [Concomitant]
     Active Substance: ISOSORBIDE MONONITRATE
     Route: 065
  2. ASPIRIN. [Concomitant]
     Active Substance: ASPIRIN
     Route: 048
  3. DRAMAMINE [Concomitant]
     Active Substance: DIMENHYDRINATE
     Route: 042
  4. NITROGLYCERINE [Concomitant]
     Active Substance: NITROGLYCERIN
  5. ATIVAN [Concomitant]
     Active Substance: LORAZEPAM
     Route: 065
  6. MORPHINE [Concomitant]
     Active Substance: MORPHINE
     Route: 042
  7. LIDOCAINE. [Concomitant]
     Active Substance: LIDOCAINE
     Route: 065
  8. LIDOCAINE. [Concomitant]
     Active Substance: LIDOCAINE
     Route: 065
  9. SURFAK (UNITED STATES) [Concomitant]
     Route: 048
  10. TYLENOL [Concomitant]
     Active Substance: ACETAMINOPHEN
     Route: 048
  11. ACTIVASE [Suspect]
     Active Substance: ALTEPLASE
     Indication: ACUTE MYOCARDIAL INFARCTION
     Route: 042
     Dates: start: 19960127
  12. HEPARIN [Concomitant]
     Active Substance: HEPARIN SODIUM

REACTIONS (5)
  - Hypotension [Unknown]
  - Pyrexia [Unknown]
  - Dyspnoea [Unknown]
  - Bradycardia [Unknown]
  - Heart sounds abnormal [Unknown]
